FAERS Safety Report 25438321 (Version 1)
Quarter: 2025Q2

REPORT INFORMATION
  Report Type: Report from Study
  Country: CN (occurrence: CN)
  Receive Date: 20250616
  Receipt Date: 20250616
  Transmission Date: 20250716
  Serious: Yes (Other)
  Sender: ROCHE
  Company Number: CN-ROCHE-10000307686

PATIENT
  Age: 70 Year
  Sex: Female

DRUGS (2)
  1. ATEZOLIZUMAB [Suspect]
     Active Substance: ATEZOLIZUMAB
     Indication: Hepatic cancer
     Dosage: STRENGTH: 1200MG/20ML?DOSE: 1200MG/20ML
     Route: 042
     Dates: start: 20240430
  2. BEVACIZUMAB [Suspect]
     Active Substance: BEVACIZUMAB
     Indication: Hepatic cancer
     Route: 042
     Dates: start: 20240430

REACTIONS (10)
  - Herpes zoster [Recovered/Resolved]
  - Muscular weakness [Unknown]
  - Metastases to bone [Unknown]
  - Chest pain [Unknown]
  - Back pain [Unknown]
  - Gait inability [Unknown]
  - Musculoskeletal pain [Unknown]
  - Abdominal distension [Unknown]
  - Decreased appetite [Unknown]
  - Vomiting [Unknown]
